FAERS Safety Report 23726407 (Version 4)
Quarter: 2024Q4

REPORT INFORMATION
  Report Type: Spontaneous
  Country: JP (occurrence: JP)
  Receive Date: 20240410
  Receipt Date: 20241025
  Transmission Date: 20250114
  Serious: Yes (Death, Hospitalization, Other)
  Sender: MERCK
  Company Number: JP-MSD-M2023-57183

PATIENT
  Age: 60 Year
  Sex: Male

DRUGS (8)
  1. KEYTRUDA [Suspect]
     Active Substance: PEMBROLIZUMAB
     Indication: Renal cell carcinoma
     Dosage: 200 MILLIGRAM, Q3W
     Route: 041
     Dates: start: 20231212, end: 20231212
  2. LENVATINIB MESYLATE [Suspect]
     Active Substance: LENVATINIB MESYLATE
     Indication: Renal cell carcinoma
     Dosage: 20 MILLIGRAM, QD
     Route: 048
     Dates: start: 20231212, end: 20231223
  3. OLMESARTAN MEDOXOMIL [Concomitant]
     Active Substance: OLMESARTAN MEDOXOMIL
     Dosage: 20 MILLIGRAM
     Route: 065
     Dates: start: 20231212, end: 20231214
  4. OLMESARTAN MEDOXOMIL [Concomitant]
     Active Substance: OLMESARTAN MEDOXOMIL
     Dosage: 20 MILLIGRAM
     Route: 065
     Dates: start: 20231227, end: 20240125
  5. DOTINURAD [Concomitant]
     Active Substance: DOTINURAD
     Dosage: 1 MILLIGRAM
     Route: 065
     Dates: start: 20231212, end: 20231214
  6. DOTINURAD [Concomitant]
     Active Substance: DOTINURAD
     Dosage: 1 MILLIGRAM
     Route: 065
     Dates: start: 20231227, end: 20240126
  7. ROSUVASTATIN CALCIUM [Concomitant]
     Active Substance: ROSUVASTATIN CALCIUM
     Dosage: 2.5 MILLIGRAM, QOD
     Route: 065
     Dates: start: 20231212, end: 20231214
  8. ROSUVASTATIN CALCIUM [Concomitant]
     Active Substance: ROSUVASTATIN CALCIUM
     Dosage: 2.5 MILLIGRAM, QOD
     Route: 065
     Dates: start: 20231228, end: 20240125

REACTIONS (10)
  - Immune-mediated pancreatitis [Fatal]
  - Arterial haemorrhage [Fatal]
  - Oesophageal candidiasis [Unknown]
  - Immune-mediated hepatitis [Recovering/Resolving]
  - Pyrexia [Unknown]
  - Immune-mediated dermatitis [Unknown]
  - Interstitial lung disease [Unknown]
  - Oropharyngeal candidiasis [Unknown]
  - Eye discharge [Unknown]
  - Oral candidiasis [Unknown]

NARRATIVE: CASE EVENT DATE: 20231224
